FAERS Safety Report 5203931-8 (Version None)
Quarter: 2007Q1

REPORT INFORMATION
  Report Type: 
  Country: None (occurrence: None)
  Receive Date: 20070109
  Receipt Date: 20070109
  Transmission Date: 20070707
  Serious: Yes (Disabling, Other)
  Sender: FDA-Public Use
  Company Number: None

PATIENT
  Age: 68 Year
  Sex: Male
  Weight: 109.3169 kg

DRUGS (5)
  1. CYMBALTA [Suspect]
     Indication: DEPRESSION
     Dosage: 120 MG QD PO 6 WEEKS
     Route: 048
     Dates: start: 20061109, end: 20061222
  2. COUMADIN [Concomitant]
  3. TEGRETOL [Concomitant]
  4. ASPIRIN [Concomitant]
  5. DIGITEK [Concomitant]

REACTIONS (1)
  - THROMBOCYTOPENIA [None]
